FAERS Safety Report 11583448 (Version 1)
Quarter: 2015Q3

REPORT INFORMATION
  Report Type: Spontaneous
  Country: US (occurrence: None)
  Receive Date: 20150930
  Receipt Date: 20150930
  Transmission Date: 20151125
  Serious: No
  Sender: FDA-Public Use
  Company Number: None

PATIENT
  Age: 58 Year
  Sex: Male
  Weight: 97.75 kg

DRUGS (1)
  1. INTRON A [Suspect]
     Active Substance: INTERFERON ALFA-2B
     Dosage: 145 MILLIUNIT
     Dates: end: 20140906

REACTIONS (2)
  - Blood creatine phosphokinase increased [None]
  - Hypophosphataemia [None]

NARRATIVE: CASE EVENT DATE: 20140912
